FAERS Safety Report 14638718 (Version 1)
Quarter: 2018Q1

REPORT INFORMATION
  Report Type: Spontaneous
  Country: IT (occurrence: IT)
  Receive Date: 20180315
  Receipt Date: 20180315
  Transmission Date: 20180509
  Serious: Yes (Hospitalization, Other)
  Sender: FDA-Public Use
  Company Number: IT-ASTRAZENECA-2018SE29510

PATIENT
  Age: 48 Year
  Sex: Female

DRUGS (3)
  1. QUETIAPINE. [Suspect]
     Active Substance: QUETIAPINE
     Indication: DRUG ABUSE
     Dosage: 1000.0MG ONCE/SINGLE ADMINISTRATION
     Route: 048
     Dates: start: 20170524, end: 20170524
  2. LORAZEPAM. [Suspect]
     Active Substance: LORAZEPAM
     Indication: DRUG ABUSE
     Dosage: 10.0MG ONCE/SINGLE ADMINISTRATION
     Route: 048
     Dates: start: 20170524, end: 20170524
  3. LITHIUM. [Suspect]
     Active Substance: LITHIUM
     Indication: DRUG ABUSE
     Dosage: 415.0MG ONCE/SINGLE ADMINISTRATION
     Route: 048
     Dates: start: 20170524, end: 20170524

REACTIONS (3)
  - Poisoning [Unknown]
  - Sopor [Unknown]
  - Drug abuse [Unknown]

NARRATIVE: CASE EVENT DATE: 20170524
